FAERS Safety Report 5850991-7 (Version None)
Quarter: 2008Q3

REPORT INFORMATION
  Report Type: 
  Country: None (occurrence: None)
  Receive Date: 20080820
  Receipt Date: 20080813
  Transmission Date: 20090109
  Serious: Yes (Death)
  Sender: FDA-Public Use
  Company Number: GB-ROCHE-580880

PATIENT
  Sex: Male
  Weight: 152 kg

DRUGS (1)
  1. ORLISTAT [Suspect]
     Indication: OBESITY
     Route: 048
     Dates: start: 20070305

REACTIONS (1)
  - DEATH [None]
